FAERS Safety Report 4805963-8 (Version None)
Quarter: 2005Q4

REPORT INFORMATION
  Report Type: 
  Country: None (occurrence: None)
  Receive Date: 20051019
  Receipt Date: 20050930
  Transmission Date: 20060501
  Serious: Yes (Other)
  Sender: FDA-Public Use
  Company Number: USA0508106380

PATIENT
  Age: 12 Year
  Sex: Male
  Weight: 51 kg

DRUGS (1)
  1. STRATTERA [Suspect]
     Indication: ATTENTION DEFICIT/HYPERACTIVITY DISORDER
     Dosage: 80 MG DAY
     Dates: start: 20050323

REACTIONS (5)
  - BENIGN INTRACRANIAL HYPERTENSION [None]
  - BLOOD GLUCOSE DECREASED [None]
  - DRUG DOSE OMISSION [None]
  - MIDDLE INSOMNIA [None]
  - PROTEIN TOTAL INCREASED [None]
